FAERS Safety Report 13246712 (Version 1)
Quarter: 2017Q1

REPORT INFORMATION
  Report Type: Spontaneous
  Country: US (occurrence: US)
  Receive Date: 20170217
  Receipt Date: 20170217
  Transmission Date: 20170428
  Serious: Yes (Death, Other)
  Sender: FDA-Public Use
  Company Number: US-OTSUKA-2016_023583

PATIENT
  Age: 15 Year
  Sex: Male
  Weight: 34.7 kg

DRUGS (2)
  1. BUSULFEX [Suspect]
     Active Substance: BUSULFAN
     Indication: TRANSPLANT
     Dosage: 0.80 MG/KG (27.8 MG INFUSED OVER 2 HRS FOLLOWED BY SERIAL SAMPLING TO AT LEAST 4 HOURS POST INFUSION
     Route: 042
  2. BUSULFEX [Suspect]
     Active Substance: BUSULFAN
     Dosage: 3.86 MG/KG, SINGLE (133 MG)
     Route: 042

REACTIONS (1)
  - Venoocclusive liver disease [Fatal]
